FAERS Safety Report 6581949-0 (Version None)
Quarter: 2010Q1

REPORT INFORMATION
  Report Type: 
  Country: None (occurrence: None)
  Receive Date: 20100215
  Receipt Date: 20100202
  Transmission Date: 20100710
  Serious: Yes (Hospitalization, Other)
  Sender: FDA-Public Use
  Company Number: US-ELI_LILLY_AND_COMPANY-US201002000797

PATIENT
  Sex: Female

DRUGS (3)
  1. BYETTA [Suspect]
     Indication: TYPE 2 DIABETES MELLITUS
     Dosage: 5 UG, 2/D
  2. BYETTA [Suspect]
     Dosage: 15 UG, DAILY (1/D)
  3. BYETTA [Suspect]
     Dosage: 5 UG, 2/D

REACTIONS (7)
  - LETHARGY [None]
  - MALAISE [None]
  - NAUSEA [None]
  - PLATELET DISORDER [None]
  - RENAL FAILURE [None]
  - VOMITING [None]
  - WEIGHT DECREASED [None]
